FAERS Safety Report 7459920-6 (Version None)
Quarter: 2011Q2

REPORT INFORMATION
  Report Type: 
  Country: None (occurrence: None)
  Receive Date: 20110504
  Receipt Date: 20110504
  Transmission Date: 20111010
  Serious: Yes (Death, Life-Threatening, Hospitalization, Disabling)
  Sender: FDA-Public Use
  Company Number: None

PATIENT
  Age: 69 Year
  Sex: Female
  Weight: 63.5036 kg

DRUGS (1)
  1. PROPAFENONE HCL [Suspect]
     Indication: ATRIAL FIBRILLATION
     Dosage: 1 TABLET EVERY 12 HOURS ORAL
     Route: 048
     Dates: start: 20100729, end: 20100804

REACTIONS (10)
  - LOSS OF CONSCIOUSNESS [None]
  - HYPOXIC-ISCHAEMIC ENCEPHALOPATHY [None]
  - DYSGEUSIA [None]
  - MEDICATION ERROR [None]
  - GAIT DISTURBANCE [None]
  - DECREASED APPETITE [None]
  - FEELING ABNORMAL [None]
  - CARDIAC ARREST [None]
  - DIZZINESS [None]
  - APALLIC SYNDROME [None]
